FAERS Safety Report 25015262 (Version 1)
Quarter: 2025Q1

REPORT INFORMATION
  Report Type: Spontaneous
  Country: US (occurrence: US)
  Receive Date: 20250226
  Receipt Date: 20250226
  Transmission Date: 20250409
  Serious: No
  Sender: JOHNSON AND JOHNSON
  Company Number: US-JNJFOC-20250242690

PATIENT
  Age: 73 Year
  Sex: Female

DRUGS (10)
  1. MACITENTAN\TADALAFIL [Suspect]
     Active Substance: MACITENTAN\TADALAFIL
     Indication: Product used for unknown indication
     Dosage: DOSE: 10/40 MG?TAKE ONE TABLET BY MOUTH DAILY
     Route: 048
  2. ALBUTEROL [Concomitant]
     Active Substance: ALBUTEROL
  3. VITAMIN B COMPLEX [Concomitant]
     Active Substance: CYANOCOBALAMIN\DEXPANTHENOL\NIACINAMIDE\PYRIDOXINE HYDROCHLORIDE\RIBOFLAVIN 5^-PHOSPHATE SODIUM\THIA
  4. BIOTIN [Concomitant]
     Active Substance: BIOTIN
  5. PHOSLO [Concomitant]
     Active Substance: CALCIUM ACETATE
  6. B 12 [Concomitant]
  7. SOMINEX [DIPHENHYDRAMINE HYDROCHLORIDE] [Concomitant]
  8. HYDRALAZINE [Concomitant]
     Active Substance: HYDRALAZINE HYDROCHLORIDE
  9. LYSINE [Concomitant]
     Active Substance: LYSINE
  10. MORPHINE [Concomitant]
     Active Substance: MORPHINE

REACTIONS (1)
  - Product dose omission issue [Unknown]

NARRATIVE: CASE EVENT DATE: 20250207
